FAERS Safety Report 7332282-0 (Version None)
Quarter: 2011Q1

REPORT INFORMATION
  Report Type: 
  Country: None (occurrence: None)
  Receive Date: 20110304
  Receipt Date: 20110302
  Transmission Date: 20110831
  Serious: Yes (Death)
  Sender: FDA-Public Use
  Company Number: BE-ROCHE-760655

PATIENT
  Sex: Female
  Weight: 65 kg

DRUGS (9)
  1. PRIMPERAN TAB [Concomitant]
     Route: 042
     Dates: start: 20110211, end: 20110218
  2. VANCOMYCIN [Concomitant]
     Route: 042
     Dates: start: 20110213, end: 20110218
  3. AUGMENTIN '125' [Concomitant]
     Dosage: DRUG NAME: AUGMENTIN/AMOXICILLIN-ACIDE CLAVCLAVULANIQUE
     Route: 042
     Dates: start: 20110215, end: 20110217
  4. AVELOX [Concomitant]
     Route: 042
     Dates: start: 20110211, end: 20110215
  5. PANTOZOL [Concomitant]
     Route: 042
     Dates: start: 20110211, end: 20110218
  6. CORDARONE [Concomitant]
     Route: 042
     Dates: start: 20110217, end: 20110218
  7. OSELTAMIVIR [Suspect]
     Indication: H1N1 INFLUENZA
     Route: 042
  8. CEFTAZIDIME [Concomitant]
     Route: 042
     Dates: start: 20110217, end: 20110218
  9. HYDROCORTISONE [Concomitant]
     Dosage: DRUG NAME: SOLUCORTEF/HYDROCORTISONE
     Route: 042
     Dates: start: 20110211, end: 20110218

REACTIONS (1)
  - DEATH [None]
